FAERS Safety Report 16772114 (Version 1)
Quarter: 2019Q4

REPORT INFORMATION
  Report Type: Spontaneous
  Country: US (occurrence: US)
  Receive Date: 20190904
  Receipt Date: 20190904
  Transmission Date: 20200122
  Serious: Yes (Other)
  Sender: FDA-Public Use
  Company Number: None

PATIENT
  Age: 19 Year
  Sex: Male
  Weight: 83.25 kg

DRUGS (1)
  1. MONTELUKAST ^TEVA^ [Suspect]
     Active Substance: MONTELUKAST SODIUM
     Indication: ASTHMA
     Dosage: ?          QUANTITY:1 TABLET(S);?
     Route: 048
     Dates: start: 20190822, end: 20190902

REACTIONS (3)
  - Depression [None]
  - Anger [None]
  - Suicidal ideation [None]

NARRATIVE: CASE EVENT DATE: 20190903
